FAERS Safety Report 8492610-X (Version None)
Quarter: 2012Q2

REPORT INFORMATION
  Report Type: 
  Country: None (occurrence: None)
  Receive Date: 20120629
  Receipt Date: 20120629
  Transmission Date: 20120825
  Serious: Yes (Other)
  Sender: FDA-Public Use
  Company Number: None

PATIENT
  Sex: Male

DRUGS (1)
  1. NORDITROPIN FLEXPRO [Suspect]
     Indication: DWARFISM
     Dosage: 2.25MG DAILY SQ
     Route: 058
     Dates: start: 20060604, end: 20120627

REACTIONS (1)
  - MEMORY IMPAIRMENT [None]
